FAERS Safety Report 15827303 (Version 1)
Quarter: 2019Q1

REPORT INFORMATION
  Report Type: Spontaneous
  Country: US (occurrence: US)
  Receive Date: 20190115
  Receipt Date: 20190115
  Transmission Date: 20190417
  Serious: Yes (Other)
  Sender: FDA-Public Use
  Company Number: US-ENDO PHARMACEUTICALS INC-2018-042524

PATIENT
  Sex: Female

DRUGS (1)
  1. PERCOCET [Suspect]
     Active Substance: ACETAMINOPHEN\OXYCODONE HYDROCHLORIDE
     Indication: PAIN
     Dosage: UNK MG, UNKNOWN (TOOK 2 PILLS)
     Route: 065
     Dates: start: 20180823

REACTIONS (5)
  - Swelling face [Unknown]
  - Presyncope [Unknown]
  - Erythema [Unknown]
  - Pruritus [Unknown]
  - Lethargy [Unknown]

NARRATIVE: CASE EVENT DATE: 20180823
